FAERS Safety Report 5313751-1 (Version None)
Quarter: 2007Q2

REPORT INFORMATION
  Report Type: 
  Country: None (occurrence: None)
  Receive Date: 20070501
  Receipt Date: 20070425
  Transmission Date: 20071010
  Serious: Yes (Hospitalization)
  Sender: FDA-Public Use
  Company Number: DE-BRISTOL-MYERS SQUIBB COMPANY-13665856

PATIENT
  Age: 69 Year
  Sex: Female
  Weight: 60 kg

DRUGS (4)
  1. SPRYCEL [Suspect]
     Indication: CHRONIC MYELOID LEUKAEMIA
     Dates: start: 20061205, end: 20061231
  2. HYDROXYUREA [Suspect]
     Indication: CHRONIC MYELOID LEUKAEMIA
     Dates: start: 20060113, end: 20061230
  3. GLEEVEC [Concomitant]
     Indication: CHRONIC MYELOID LEUKAEMIA
     Dates: start: 20030327, end: 20050502
  4. CARBIMAZOLE [Concomitant]
     Indication: HYPERTHYROIDISM
     Dates: start: 20030401

REACTIONS (7)
  - ANAEMIA [None]
  - CEREBROVASCULAR INSUFFICIENCY [None]
  - DYSPNOEA [None]
  - LEFT VENTRICULAR FAILURE [None]
  - LEUKOPENIA [None]
  - PULMONARY CONGESTION [None]
  - THROMBOCYTOPENIA [None]
